FAERS Safety Report 7572094-6 (Version None)
Quarter: 2011Q2

REPORT INFORMATION
  Report Type: 
  Country: None (occurrence: None)
  Receive Date: 20110624
  Receipt Date: 20110614
  Transmission Date: 20111010
  Serious: Yes (Hospitalization)
  Sender: FDA-Public Use
  Company Number: DE-ELI_LILLY_AND_COMPANY-DE201106003641

PATIENT
  Sex: Female
  Weight: 73 kg

DRUGS (5)
  1. ENOXAPARIN SODIUM [Concomitant]
     Dosage: 0.4 MG, UNK
     Route: 042
     Dates: start: 20110523
  2. DOCETAXEL [Suspect]
     Indication: BREAST CANCER
     Dosage: 125 MG, UNK
     Route: 042
     Dates: start: 20110506
  3. GEMCITABINE HYDROCHLORIDE [Suspect]
     Indication: BREAST CANCER
     Dosage: 1660 MG, UNK
     Route: 042
     Dates: start: 20110506
  4. SOLU DACORTIN [Concomitant]
     Dosage: 50 MG, UNK
     Route: 042
     Dates: start: 20110506, end: 20110520
  5. FUROSEMIDE [Concomitant]
     Indication: OEDEMA
     Dosage: 40 MG, UNK
     Route: 048
     Dates: start: 20110520

REACTIONS (4)
  - CHEST DISCOMFORT [None]
  - CARDIOVASCULAR INSUFFICIENCY [None]
  - GENERAL PHYSICAL HEALTH DETERIORATION [None]
  - SWELLING FACE [None]
